FAERS Safety Report 9630096 (Version 1)
Quarter: 2013Q4

REPORT INFORMATION
  Report Type: Spontaneous
  Country: US (occurrence: US)
  Receive Date: 20131017
  Receipt Date: 20131017
  Transmission Date: 20140711
  Serious: No
  Sender: FDA-Public Use
  Company Number: US-009507513-1310USA007148

PATIENT
  Sex: Male

DRUGS (1)
  1. SAPHRIS [Suspect]
     Route: 060

REACTIONS (1)
  - Dyspnoea [Recovered/Resolved]
